FAERS Safety Report 10012250 (Version 1)
Quarter: 2014Q1

REPORT INFORMATION
  Report Type: Spontaneous
  Country: US (occurrence: US)
  Receive Date: 20140314
  Receipt Date: 20140314
  Transmission Date: 20141002
  Serious: Yes (Hospitalization)
  Sender: FDA-Public Use
  Company Number: 2014SP001294

PATIENT
  Age: 73 Year
  Sex: Female

DRUGS (9)
  1. RIFAMPIN [Suspect]
     Indication: GASTRIC CANCER
     Route: 048
     Dates: start: 20131217, end: 20131231
  2. CRIZOTINIB [Suspect]
     Indication: GASTRIC CANCER
     Route: 048
     Dates: start: 20131203
  3. CALCIUM CITRATE [Concomitant]
     Dates: start: 20131101
  4. ATIVAN [Concomitant]
     Indication: INSOMNIA
     Dates: start: 20131101
  5. METOCLOPRAMIDE [Concomitant]
     Indication: PRODUCT USED FOR UNKNOWN INDICATION
     Dates: start: 20131022
  6. POLYETHYLENE GLYCOL [Concomitant]
     Indication: CONSTIPATION
     Dates: start: 20131101
  7. DILAUDID [Concomitant]
     Indication: PAIN
     Dates: start: 20131105
  8. OXYCONTIN [Concomitant]
     Indication: PAIN
     Dates: start: 20131022
  9. REMERON [Concomitant]
     Indication: PRODUCT USED FOR UNKNOWN INDICATION
     Dates: start: 20131119

REACTIONS (1)
  - Intestinal obstruction [Unknown]
